FAERS Safety Report 7942210-2 (Version None)
Quarter: 2011Q4

REPORT INFORMATION
  Report Type: 
  Country: None (occurrence: None)
  Receive Date: 20111128
  Receipt Date: 20111116
  Transmission Date: 20120403
  Serious: Yes (Other)
  Sender: FDA-Public Use
  Company Number: JP-ELI_LILLY_AND_COMPANY-JP201111005710

PATIENT
  Age: 69 Year
  Sex: Male

DRUGS (1)
  1. GEMZAR [Suspect]
     Indication: PANCREATIC CARCINOMA
     Dosage: UNK
     Route: 042
     Dates: start: 20110301

REACTIONS (5)
  - SYSTEMIC MYCOSIS [None]
  - INFECTIOUS PERITONITIS [None]
  - METASTASES TO PERITONEUM [None]
  - RENAL IMPAIRMENT [None]
  - ILEAL ULCER PERFORATION [None]
